FAERS Safety Report 5551558-0 (Version None)
Quarter: 2007Q4

REPORT INFORMATION
  Report Type: 
  Country: None (occurrence: None)
  Receive Date: 20071212
  Receipt Date: 20071203
  Transmission Date: 20080405
  Serious: Yes (Other)
  Sender: FDA-Public Use
  Company Number: US-SANOFI-SYNTHELABO-A03200706072

PATIENT
  Sex: Female

DRUGS (7)
  1. AMBIEN [Suspect]
     Indication: INSOMNIA
     Route: 048
     Dates: start: 20030801, end: 20041211
  2. AMBIEN [Suspect]
     Route: 048
     Dates: start: 20041212, end: 20050612
  3. AMBIEN [Suspect]
     Route: 048
     Dates: start: 20050613
  4. PROZAC [Concomitant]
     Indication: DEPRESSION
     Dosage: 20MG - 40MG - 60MG UNK
     Route: 048
  5. WELLBUTRIN XL [Concomitant]
     Indication: DEPRESSION
     Route: 048
  6. XANAX [Concomitant]
     Indication: ANXIETY
     Route: 048
  7. ALDACTONE [Concomitant]
     Indication: HYPERADRENALISM
     Route: 048
     Dates: start: 19850101, end: 20070101

REACTIONS (8)
  - AMNESIA [None]
  - DEPRESSION [None]
  - DRUG ABUSE [None]
  - EATING DISORDER [None]
  - STRESS [None]
  - THERAPEUTIC RESPONSE DELAYED [None]
  - THERAPY REGIMEN CHANGED [None]
  - VICTIM OF SEXUAL ABUSE [None]
